FAERS Safety Report 9646571 (Version 2)
Quarter: 2013Q4

REPORT INFORMATION
  Report Type: Spontaneous
  Country: DE (occurrence: DE)
  Receive Date: 20131025
  Receipt Date: 20131025
  Transmission Date: 20140711
  Serious: Yes (Hospitalization)
  Sender: FDA-Public Use
  Company Number: DE-ROCHE-1246679

PATIENT
  Age: 76 Year
  Sex: Male
  Weight: 74 kg

DRUGS (11)
  1. RITUXIMAB [Suspect]
     Indication: NON-HODGKIN^S LYMPHOMA
     Dosage: ON DAY 1 OF CYCLE
     Route: 042
     Dates: start: 20130404, end: 20130528
  2. ALLOPURINOL [Suspect]
     Indication: PROPHYLAXIS
     Route: 048
     Dates: start: 20130604
  3. BENDAMUSTINE [Suspect]
     Indication: NON-HODGKIN^S LYMPHOMA
     Dosage: ON DAYS 2 AND 3 OF CYCLE
     Route: 065
     Dates: start: 20130405
  4. DIGITOXIN [Concomitant]
     Route: 065
  5. OPIPRAMOL [Concomitant]
     Route: 065
  6. METOHEXAL (GERMANY) [Concomitant]
     Route: 065
  7. MICARDIS [Concomitant]
     Route: 065
  8. XARELTO [Concomitant]
     Route: 065
  9. FORTECORTIN (GERMANY) [Concomitant]
     Route: 065
  10. LAXOBERAL [Concomitant]
     Route: 065
  11. PASPERTIN (GERMANY) [Concomitant]
     Route: 065

REACTIONS (4)
  - Stevens-Johnson syndrome [Recovered/Resolved]
  - Oesophageal mucosa erythema [Recovering/Resolving]
  - Gastrooesophageal reflux disease [Recovering/Resolving]
  - Depression [Recovering/Resolving]
